FAERS Safety Report 20257361 (Version 2)
Quarter: 2022Q1

REPORT INFORMATION
  Report Type: Spontaneous
  Country: FR (occurrence: FR)
  Receive Date: 20211230
  Receipt Date: 20220106
  Transmission Date: 20220424
  Serious: Yes (Other)
  Sender: FDA-Public Use
  Company Number: FR-AUROBINDO-AUR-APL-2021-048766

PATIENT
  Age: 67 Year
  Sex: Female

DRUGS (4)
  1. NOREPINEPHRINE\NOREPINEPHRINE BITARTRATE [Suspect]
     Active Substance: NOREPINEPHRINE\NOREPINEPHRINE BITARTRATE
     Indication: Product administration error
     Dosage: 8 MILLIGRAM (ONE INJECTION)
     Route: 042
     Dates: start: 2021
  2. NOREPINEPHRINE\NOREPINEPHRINE BITARTRATE [Suspect]
     Active Substance: NOREPINEPHRINE\NOREPINEPHRINE BITARTRATE
     Dosage: 8 MILLIGRAM (ONE INJECTION)
     Route: 042
     Dates: start: 20211002
  3. PHLOROGLUCINOL\1,3,5-TRIMETHOXYBENZENE [Suspect]
     Active Substance: PHLOROGLUCINOL\1,3,5-TRIMETHOXYBENZENE
     Indication: Abdominal pain lower
     Dosage: 120 MILLIGRAM (TWO INJECTIONS)
     Route: 042
     Dates: start: 2021
  4. NOREPINEPHRINE [Concomitant]
     Active Substance: NOREPINEPHRINE
     Indication: Product used for unknown indication
     Dosage: UNK
     Route: 065
     Dates: start: 2021

REACTIONS (5)
  - Hypotension [Recovered/Resolved]
  - Wrong product administered [Recovered/Resolved]
  - Product appearance confusion [Recovered/Resolved]
  - Hypertension [Recovered/Resolved]
  - Tachycardia [Recovered/Resolved]

NARRATIVE: CASE EVENT DATE: 20210101
